FAERS Safety Report 4318994-1 (Version None)
Quarter: 2004Q1

REPORT INFORMATION
  Report Type: 
  Country: None (occurrence: None)
  Receive Date: 20040316
  Receipt Date: 20040302
  Transmission Date: 20041129
  Serious: Yes (Hospitalization)
  Sender: FDA-Public Use
  Company Number: JP_030901768

PATIENT
  Age: 70 Year
  Sex: Male
  Weight: 61 kg

DRUGS (7)
  1. GEMZAR [Suspect]
     Indication: NON-SMALL CELL LUNG CANCER
     Dosage: 1000 MG/M2/OTHER
     Route: 050
     Dates: start: 20021118, end: 20021118
  2. MAGNESIUM OXIDE [Concomitant]
  3. AM [Concomitant]
  4. LIPOCLIN (CLINOFIBRATE) [Concomitant]
  5. TICLOPIDINE HCL [Concomitant]
  6. NORVASC [Concomitant]
  7. LASIX [Concomitant]

REACTIONS (3)
  - FALL [None]
  - LUMBAR VERTEBRAL FRACTURE [None]
  - SPINAL COMPRESSION FRACTURE [None]
